FAERS Safety Report 10306301 (Version 2)
Quarter: 2014Q3

REPORT INFORMATION
  Report Type: Spontaneous
  Country: US (occurrence: US)
  Receive Date: 20140715
  Receipt Date: 20140807
  Transmission Date: 20150326
  Serious: Yes (Other)
  Sender: FDA-Public Use
  Company Number: US-BAYER-2014-106117

PATIENT
  Age: 44 Year
  Sex: Female

DRUGS (4)
  1. AMOXISTAD [AMOXICILLIN TRIHYDRATE,CLAVULANATE POTASSIUM] [Concomitant]
     Dosage: 875 MG, UNK
     Route: 048
     Dates: start: 20070401
  2. FISH OIL [Concomitant]
     Active Substance: FISH OIL
     Dosage: UNK
     Route: 048
     Dates: start: 20070526
  3. ACETYLSALICYLIC ACID [Concomitant]
     Active Substance: ASPIRIN
  4. YAZ [Suspect]
     Active Substance: DROSPIRENONE\ETHINYL ESTRADIOL
     Dosage: UNK
     Dates: start: 200704, end: 20070526

REACTIONS (7)
  - Emotional distress [None]
  - Pain [None]
  - Deep vein thrombosis [Recovered/Resolved]
  - Pain [Recovered/Resolved]
  - General physical health deterioration [Recovered/Resolved]
  - Anxiety [None]
  - Injury [Recovered/Resolved]

NARRATIVE: CASE EVENT DATE: 20070519
